FAERS Safety Report 4784263-9 (Version None)
Quarter: 2005Q3

REPORT INFORMATION
  Report Type: 
  Country: None (occurrence: None)
  Receive Date: 20050928
  Receipt Date: 20050915
  Transmission Date: 20060218
  Serious: Yes (Disabling)
  Sender: FDA-Public Use
  Company Number: HQWYE520119SEP05

PATIENT
  Sex: Female
  Weight: 70.37 kg

DRUGS (4)
  1. EFFEXOR [Suspect]
     Indication: DEPRESSION
     Dosage: SEE IMAGE
     Route: 048
  2. EFFEXOR [Suspect]
     Indication: GENERALISED ANXIETY DISORDER
     Dosage: SEE IMAGE
     Route: 048
  3. DIAZEPAM [Concomitant]
  4. REMERON [Concomitant]

REACTIONS (22)
  - ANXIETY [None]
  - CONDITION AGGRAVATED [None]
  - DEPRESSION [None]
  - DIZZINESS [None]
  - DYSPNOEA [None]
  - ECONOMIC PROBLEM [None]
  - FALL [None]
  - FATIGUE [None]
  - HYPOAESTHESIA [None]
  - INFECTION [None]
  - INJURY [None]
  - LOSS OF EMPLOYMENT [None]
  - MIGRAINE [None]
  - PARADOXICAL DRUG REACTION [None]
  - PARAESTHESIA [None]
  - POOR PERIPHERAL CIRCULATION [None]
  - RASH [None]
  - SCAR [None]
  - SELF MUTILATION [None]
  - SKIN LESION [None]
  - SUICIDAL IDEATION [None]
  - VISION BLURRED [None]
